FAERS Safety Report 9437851 (Version 1)
Quarter: 2013Q3

REPORT INFORMATION
  Report Type: Spontaneous
  Country: US (occurrence: US)
  Receive Date: 20130802
  Receipt Date: 20130802
  Transmission Date: 20140515
  Serious: Yes (Hospitalization, Other)
  Sender: FDA-Public Use
  Company Number: US-BRISTOL-MYERS SQUIBB COMPANY-18856179

PATIENT
  Age: 68 Year
  Sex: Female
  Weight: 122.45 kg

DRUGS (2)
  1. COUMADIN [Suspect]
     Indication: ATRIAL FIBRILLATION
     Route: 048
     Dates: end: 20120321
  2. REVATIO [Suspect]
     Indication: PULMONARY HYPERTENSION
     Dosage: TABS
     Route: 048
     Dates: start: 201301

REACTIONS (5)
  - Gastrointestinal haemorrhage [Recovered/Resolved]
  - Anaemia [Recovered/Resolved]
  - Coagulopathy [Unknown]
  - Neck pain [Recovered/Resolved]
  - Headache [Recovered/Resolved]
